FAERS Safety Report 6241486-X (Version None)
Quarter: 2009Q2

REPORT INFORMATION
  Report Type: 
  Country: None (occurrence: None)
  Receive Date: 20090623
  Receipt Date: 20090615
  Transmission Date: 20091009
  Serious: Yes (Hospitalization)
  Sender: FDA-Public Use
  Company Number: BR-ROCHE-637955

PATIENT
  Age: 33 Year
  Sex: Female
  Weight: 56 kg

DRUGS (6)
  1. MYCOPHENOLATE MOFETIL [Suspect]
     Route: 065
     Dates: start: 20030101
  2. MYCOPHENOLATE MOFETIL [Suspect]
     Route: 065
  3. MYCOPHENOLATE MOFETIL [Suspect]
     Route: 065
     Dates: start: 20050101
  4. CYCLOSPORINE [Suspect]
     Dosage: TARGET TROUGH LEVEL OF 400 NG/ML
     Route: 065
     Dates: start: 20030101
  5. PREDNISONE [Suspect]
     Route: 065
     Dates: start: 20030101
  6. CARBAMAZEPINE [Concomitant]

REACTIONS (2)
  - HEART TRANSPLANT REJECTION [None]
  - RIGHT VENTRICULAR DYSFUNCTION [None]
